FAERS Safety Report 5823898-9 (Version None)
Quarter: 2008Q3

REPORT INFORMATION
  Report Type: 
  Country: None (occurrence: None)
  Receive Date: 20080724
  Receipt Date: 20080714
  Transmission Date: 20090109
  Serious: Yes (Other)
  Sender: FDA-Public Use
  Company Number: 2008AP001728

PATIENT
  Sex: Female
  Weight: 0.64 kg

DRUGS (1)
  1. LABETALOL HCL [Suspect]
     Dosage: TRMA
     Route: 063

REACTIONS (6)
  - BRADYCARDIA [None]
  - CAESAREAN SECTION [None]
  - DRUG EXPOSURE VIA BREAST MILK [None]
  - PRE-ECLAMPSIA [None]
  - PREMATURE BABY [None]
  - SUPRAVENTRICULAR EXTRASYSTOLES [None]
